FAERS Safety Report 23903087 (Version 1)
Quarter: 2024Q2

REPORT INFORMATION
  Report Type: Spontaneous
  Country: GB (occurrence: GB)
  Receive Date: 20240527
  Receipt Date: 20240527
  Transmission Date: 20240716
  Serious: Yes (Other)
  Sender: FDA-Public Use
  Company Number: GB-GLAXOSMITHKLINE-GB2024GSK063870

PATIENT

DRUGS (2)
  1. MONTELUKAST [Suspect]
     Active Substance: MONTELUKAST SODIUM
     Indication: Asthma
     Dosage: 10 MG, QD
  2. FLUTICASONE PROPIONATE\SALMETEROL XINAFOATE [Suspect]
     Active Substance: FLUTICASONE PROPIONATE\SALMETEROL XINAFOATE
     Indication: Asthma
     Dosage: 2 PUFF(S), (250 UG/25UG) BID

REACTIONS (9)
  - Eosinophilic granulomatosis with polyangiitis [Recovering/Resolving]
  - Respiratory symptom [Recovering/Resolving]
  - Condition aggravated [Recovering/Resolving]
  - Rash maculo-papular [Recovering/Resolving]
  - Lung infiltration [Recovering/Resolving]
  - Eosinophilic pneumonia [Recovering/Resolving]
  - Granuloma [Recovering/Resolving]
  - Bronchial metaplasia [Recovering/Resolving]
  - Drug ineffective [Unknown]
